FAERS Safety Report 9283674 (Version 3)
Quarter: 2013Q3

REPORT INFORMATION
  Report Type: Report from Study
  Country: DE (occurrence: DE)
  Receive Date: 20130510
  Receipt Date: 20130826
  Transmission Date: 20140515
  Serious: Yes (Death, Life-Threatening, Hospitalization, Other)
  Sender: FDA-Public Use
  Company Number: PHHY2013DE040616

PATIENT
  Sex: Male

DRUGS (9)
  1. AFINITOR [Suspect]
     Indication: METASTATIC RENAL CELL CARCINOMA
     Dosage: 10 MG, DAILY
     Route: 048
     Dates: start: 20130207
  2. SPIRIVA [Concomitant]
     Indication: CHRONIC OBSTRUCTIVE PULMONARY DISEASE
     Dates: start: 19980101
  3. GABAPENTIN [Concomitant]
     Indication: ABDOMINAL PAIN
     Dosage: 300 MG
     Dates: start: 20130215
  4. JURNISTA [Concomitant]
     Indication: PAIN IN EXTREMITY
     Dosage: 32 MG
     Dates: start: 20130215
  5. PANTOPRAZOLE [Concomitant]
     Indication: DYSPNOEA
     Dosage: 40 MG
     Dates: start: 20130215
  6. PANTOPRAZOLE [Concomitant]
     Indication: ABDOMINAL DISCOMFORT
  7. NOVAMINSULFON [Concomitant]
     Indication: ABDOMINAL PAIN
     Dates: start: 20130215
  8. PALLADON [Concomitant]
     Indication: PAIN IN EXTREMITY
     Dates: start: 20130215
  9. RUDOTEL [Concomitant]
     Dosage: 20 MG
     Dates: start: 20130310

REACTIONS (4)
  - Acute respiratory failure [Fatal]
  - Pleural effusion [Fatal]
  - Respiratory distress [Unknown]
  - Hypoxia [Unknown]
